FAERS Safety Report 24302792 (Version 1)
Quarter: 2024Q3

REPORT INFORMATION
  Report Type: Spontaneous
  Country: US (occurrence: US)
  Receive Date: 20240910
  Receipt Date: 20240910
  Transmission Date: 20241016
  Serious: No
  Sender: MYLAN
  Company Number: US-MYLANLABS-2024M1081346

PATIENT
  Sex: Female
  Weight: 85.28 kg

DRUGS (1)
  1. EPINEPHRINE [Suspect]
     Active Substance: EPINEPHRINE
     Indication: Hypersensitivity
     Dosage: UNK
     Route: 030

REACTIONS (5)
  - Muscle spasms [Recovered/Resolved]
  - Amnesia [Unknown]
  - Fatigue [Unknown]
  - Hypoaesthesia [Unknown]
  - Product substitution issue [Unknown]
